FAERS Safety Report 16446348 (Version 1)
Quarter: 2019Q2

REPORT INFORMATION
  Report Type: Spontaneous
  Country: SE (occurrence: SE)
  Receive Date: 20190618
  Receipt Date: 20190618
  Transmission Date: 20190711
  Serious: Yes (Hospitalization, Other)
  Sender: FDA-Public Use
  Company Number: SE-TEVA-2019-SE-1063966

PATIENT
  Age: 77 Year
  Sex: Male

DRUGS (12)
  1. TROMBYL [Concomitant]
     Active Substance: ASPIRIN
     Route: 065
  2. FOLACIN [Concomitant]
     Route: 065
  3. ALVEDON FORTE [Concomitant]
     Route: 065
  4. ZOLPIDEM [Concomitant]
     Active Substance: ZOLPIDEM\ZOLPIDEM TARTRATE
     Route: 065
  5. METOPROLOL. [Concomitant]
     Active Substance: METOPROLOL
     Route: 065
  6. ROSUVASTATIN. [Suspect]
     Active Substance: ROSUVASTATIN
     Route: 065
     Dates: start: 20190404, end: 20190508
  7. ATORVASTATIN [Suspect]
     Active Substance: ATORVASTATIN
     Route: 065
     Dates: end: 201904
  8. NITROLINGUAL [Concomitant]
     Active Substance: NITROGLYCERIN
     Route: 065
  9. SUSCARD [Concomitant]
     Active Substance: NITROGLYCERIN
     Route: 065
  10. ISOSORBIDMONONITRAT [Concomitant]
     Active Substance: ISOSORBIDE MONONITRATE
     Route: 065
  11. BRILIQUE [Concomitant]
     Active Substance: TICAGRELOR
     Route: 065
  12. OXYNORM [Concomitant]
     Active Substance: OXYCODONE HYDROCHLORIDE
     Route: 065

REACTIONS (3)
  - Acute kidney injury [Recovering/Resolving]
  - Myalgia [Recovering/Resolving]
  - Rhabdomyolysis [Recovering/Resolving]

NARRATIVE: CASE EVENT DATE: 20190508
